FAERS Safety Report 21425895 (Version 5)
Quarter: 2022Q4

REPORT INFORMATION
  Report Type: Spontaneous
  Country: US (occurrence: US)
  Receive Date: 20221008
  Receipt Date: 20221217
  Transmission Date: 20230113
  Serious: Yes (Hospitalization, Other)
  Sender: FDA-Public Use
  Company Number: US-UNITED THERAPEUTICS-UNT-2022-020899

PATIENT
  Sex: Female
  Weight: 62.132 kg

DRUGS (12)
  1. REMODULIN [Suspect]
     Active Substance: TREPROSTINIL
     Indication: Pulmonary arterial hypertension
     Dosage: UNK, CONTINUING
     Route: 058
     Dates: start: 20220808
  2. REMODULIN [Suspect]
     Active Substance: TREPROSTINIL
     Dosage: 0.008 ?G/KG (PRE-FILLED WITH 3 ML PER CASSETTE AT A RATE OF 31 MCL/HOUR), CONTINUING
     Route: 058
     Dates: start: 2022
  3. REMODULIN [Suspect]
     Active Substance: TREPROSTINIL
     Dosage: UNK (PRE-FILLED WITH 3 ML PER CASSETTE AT A RATE OF 35 MCL/HOUR), CONTINUING
     Route: 058
     Dates: start: 2022
  4. REMODULIN [Suspect]
     Active Substance: TREPROSTINIL
     Dosage: 0.009 ?G/KG, CONTINUING
     Route: 058
     Dates: start: 2022
  5. REMODULIN [Suspect]
     Active Substance: TREPROSTINIL
     Indication: Pulmonary arterial hypertension
     Dosage: UNK, CONTINUING
     Route: 058
     Dates: start: 2022
  6. REMODULIN [Suspect]
     Active Substance: TREPROSTINIL
     Dosage: 0.010 ?G/KG, CONTINUING (PRE-FILLED WITH 1.8 ML PER CASSETTE; PUMP RATE OF 16 MCL PER HOUR)
     Route: 058
     Dates: start: 2022
  7. REMODULIN [Suspect]
     Active Substance: TREPROSTINIL
     Dosage: UNK, CONTINUING (INCREASED DOSE)
     Route: 058
     Dates: start: 20221026, end: 202210
  8. REMODULIN [Suspect]
     Active Substance: TREPROSTINIL
     Dosage: UNK, CONTINUING (DECREASED DOSE)
     Route: 058
     Dates: start: 202210
  9. REMODULIN [Suspect]
     Active Substance: TREPROSTINIL
     Dosage: 0.011 ?G/KG, CONTINUING (PRE-FILLED WITH 2 ML PER CASSETTE; PUMP RATE OF 17 MCL PER HOUR)
     Route: 058
     Dates: start: 2022
  10. REMODULIN [Suspect]
     Active Substance: TREPROSTINIL
     Dosage: 0.010 ?G/KG, CONTINUING (PRE-FILLED WITH 2 ML PER CASSETTE; PUMP RATE OF 16 MCL PER HOUR)
     Route: 058
     Dates: start: 2022
  11. REMODULIN [Suspect]
     Active Substance: TREPROSTINIL
     Dosage: 0.010 ?G/KG, CONTINUING (PRE-FILLED WITH 2.2 ML PER CASSETTE; PUMP RATE OF 17 MCL PER HOUR)
     Route: 058
     Dates: start: 2022
  12. OPSUMIT [Suspect]
     Active Substance: MACITENTAN
     Indication: Product used for unknown indication
     Dosage: UNK
     Route: 065
     Dates: start: 2022, end: 2022

REACTIONS (14)
  - Blood potassium decreased [Unknown]
  - Blood magnesium decreased [Unknown]
  - Myocardial necrosis marker increased [Unknown]
  - Heart rate increased [Not Recovered/Not Resolved]
  - Arrhythmia [Unknown]
  - Supraventricular tachycardia [Unknown]
  - Dyspnoea [Unknown]
  - Palpitations [Not Recovered/Not Resolved]
  - Oxygen saturation decreased [Unknown]
  - Stress [Unknown]
  - Weight fluctuation [Unknown]
  - Hyperhidrosis [Unknown]
  - Muscular weakness [Unknown]
  - Weight decreased [Unknown]

NARRATIVE: CASE EVENT DATE: 20220101
